FAERS Safety Report 24997359 (Version 1)
Quarter: 2025Q1

REPORT INFORMATION
  Report Type: Spontaneous
  Country: CN (occurrence: CN)
  Receive Date: 20250222
  Receipt Date: 20250222
  Transmission Date: 20250409
  Serious: Yes (Hospitalization)
  Sender: AMGEN
  Company Number: CN-AMGEN-CHNSP2025033320

PATIENT
  Age: 73 Year
  Sex: Female

DRUGS (1)
  1. EVOLOCUMAB [Suspect]
     Active Substance: EVOLOCUMAB
     Indication: Hyperlipidaemia
     Route: 058

REACTIONS (6)
  - Biliary obstruction [Recovered/Resolved]
  - Septic shock [Recovered/Resolved]
  - Cholangitis infective [Recovered/Resolved]
  - Biliary dilatation [Recovered/Resolved]
  - Device occlusion [Recovered/Resolved]
  - Malignant biliary obstruction [Recovered/Resolved]
